FAERS Safety Report 4602877-3 (Version None)
Quarter: 2005Q1

REPORT INFORMATION
  Report Type: 
  Country: None (occurrence: None)
  Receive Date: 20050309
  Receipt Date: 20050117
  Transmission Date: 20050727
  Serious: Yes (Other)
  Sender: FDA-Public Use
  Company Number: JP-GLAXOSMITHKLINE-B0365405A

PATIENT
  Age: 66 Year
  Sex: Female
  Weight: 37 kg

DRUGS (7)
  1. IMIGRAN [Suspect]
     Indication: MIGRAINE
     Dosage: 50MG PER DAY
     Route: 048
     Dates: start: 20050115, end: 20050115
  2. PAXIL [Concomitant]
     Indication: ANALGESIC THERAPY
     Dosage: 20MG PER DAY
     Route: 048
     Dates: start: 20041119
  3. LIORESAL [Concomitant]
     Indication: ANALGESIC THERAPY
     Dosage: 15MG PER DAY
     Route: 048
  4. SIGMART [Concomitant]
     Dosage: 15MG PER DAY
     Route: 048
  5. NORVASC [Concomitant]
     Dosage: 2.5MG PER DAY
     Route: 048
  6. BENZALIN [Concomitant]
     Indication: INSOMNIA
     Dosage: 5MG PER DAY
     Route: 048
  7. LENDEM [Concomitant]
     Indication: INSOMNIA
     Route: 048

REACTIONS (8)
  - AFFECTIVE DISORDER [None]
  - DIZZINESS [None]
  - DYSPNOEA [None]
  - FEELING ABNORMAL [None]
  - GAIT DISTURBANCE [None]
  - NAUSEA [None]
  - PALPITATIONS [None]
  - RESPIRATORY DISTRESS [None]
